FAERS Safety Report 8712770 (Version 3)
Quarter: 2012Q4

REPORT INFORMATION
  Report Type: Report from Study
  Country: AU (occurrence: AU)
  Receive Date: 20120808
  Receipt Date: 20121017
  Transmission Date: 20130627
  Serious: Yes (Other)
  Sender: FDA-Public Use
  Company Number: AU-SANOFI-AVENTIS-2012SA054487

PATIENT
  Age: 68 Year
  Sex: Male
  Weight: 95 kg

DRUGS (12)
  1. CABAZITAXEL [Suspect]
     Indication: PROSTATE CANCER METASTATIC
     Route: 042
     Dates: start: 20120214, end: 20120214
  2. CABAZITAXEL [Suspect]
     Indication: PROSTATE CANCER METASTATIC
     Route: 042
     Dates: start: 20120710, end: 20120710
  3. PREDNISONE [Suspect]
     Indication: PROSTATE CANCER METASTATIC
     Route: 048
     Dates: start: 20120214, end: 20120725
  4. ZOLADEX [Concomitant]
     Indication: PROPHYLAXIS
     Route: 051
     Dates: start: 200709
  5. VENTOLINE [Concomitant]
     Indication: PROPHYLAXIS
     Route: 055
     Dates: start: 1992
  6. CICLESONIDE [Concomitant]
     Indication: PROPHYLAXIS
     Route: 055
     Dates: start: 2009
  7. PRISTIQ [Concomitant]
     Indication: PROPHYLAXIS
     Route: 048
     Dates: start: 201005
  8. PERINDOPRIL [Concomitant]
     Indication: PROPHYLAXIS
     Route: 048
     Dates: start: 201008
  9. GLUCOSAMINE [Concomitant]
     Indication: PROPHYLAXIS
     Route: 048
     Dates: start: 20120215
  10. MAGNESIUM [Concomitant]
     Indication: PROPHYLAXIS
     Route: 048
     Dates: start: 201006
  11. TEMAZE [Concomitant]
     Indication: PROPHYLAXIS
     Route: 048
     Dates: start: 20120215
  12. HERBAL PREPARATION [Concomitant]
     Indication: PROPHYLAXIS
     Route: 048
     Dates: start: 201006

REACTIONS (1)
  - Pulmonary embolism [Recovered/Resolved]
